FAERS Safety Report 14452820 (Version 7)
Quarter: 2018Q2

REPORT INFORMATION
  Report Type: Spontaneous
  Country: US (occurrence: US)
  Receive Date: 20180129
  Receipt Date: 20180515
  Transmission Date: 20180711
  Serious: No
  Sender: FDA-Public Use
  Company Number: US-PFIZER INC-2018035507

PATIENT
  Age: 77 Year
  Sex: Male
  Weight: 104 kg

DRUGS (4)
  1. IBRANCE [Suspect]
     Active Substance: PALBOCICLIB
     Indication: BREAST CANCER METASTATIC
     Dosage: 125 MG, CYCLIC (DAY 1 TO DAY 21, EVERY 28 DAYS)
     Route: 048
     Dates: start: 20180118
  2. IBRANCE [Suspect]
     Active Substance: PALBOCICLIB
     Dosage: 125 MG, CYCLIC (DAY 1 TO DAY 21, EVERY 28 DAYS)
     Route: 048
  3. IBRANCE [Suspect]
     Active Substance: PALBOCICLIB
     Dosage: 75 MG, CYCLIC [DAYS 1-21 Q28 DAYS]
     Route: 048
     Dates: start: 20180118
  4. IBRANCE [Suspect]
     Active Substance: PALBOCICLIB
     Dosage: 125 MG, CYCLIC (DAY 1 TO DAY 21, EVERY 28 DAYS)
     Route: 048
     Dates: start: 20180118

REACTIONS (15)
  - Dyspnoea exertional [Unknown]
  - Product use issue [Unknown]
  - Cough [Unknown]
  - Condition aggravated [Not Recovered/Not Resolved]
  - Decreased appetite [Unknown]
  - Listless [Unknown]
  - White blood cell count decreased [Unknown]
  - Irritability [Unknown]
  - Sinusitis [Unknown]
  - Nasopharyngitis [Unknown]
  - Pallor [Unknown]
  - Frustration tolerance decreased [Unknown]
  - Sputum discoloured [Unknown]
  - Mood altered [Unknown]
  - Fatigue [Not Recovered/Not Resolved]

NARRATIVE: CASE EVENT DATE: 2018
